FAERS Safety Report 5607293-3 (Version None)
Quarter: 2008Q1

REPORT INFORMATION
  Report Type: 
  Country: None (occurrence: None)
  Receive Date: 20080130
  Receipt Date: 20080123
  Transmission Date: 20080703
  Serious: Yes (Other)
  Sender: FDA-Public Use
  Company Number: US-JNJFOC-20080105770

PATIENT
  Sex: Female
  Weight: 105.24 kg

DRUGS (6)
  1. REMICADE [Suspect]
     Indication: PSORIATIC ARTHROPATHY
     Route: 042
  2. FOLIC ACID [Concomitant]
  3. FOSAMAX [Concomitant]
  4. MTX [Concomitant]
  5. VITAMIN D [Concomitant]
  6. CHANTIX [Concomitant]

REACTIONS (1)
  - RENAL CELL CARCINOMA [None]
